FAERS Safety Report 9254393 (Version 1)
Quarter: 2013Q2

REPORT INFORMATION
  Report Type: Spontaneous
  Country: US (occurrence: None)
  Receive Date: 20130422
  Receipt Date: 20130422
  Transmission Date: 20140414
  Serious: Yes (Life-Threatening, Other)
  Sender: FDA-Public Use
  Company Number: 2013P1004710

PATIENT
  Age: 10 Year
  Sex: Male

DRUGS (3)
  1. HEPARIN [Suspect]
     Indication: ANTICOAGULANT THERAPY
     Dosage: 30 IU/KG;QH
  2. HEPARIN [Suspect]
     Indication: VENTRICULAR ASSIST DEVICE INSERTION
     Dosage: 30 IU/KG;QH
  3. DIPYRRIDAMOLE [Concomitant]

REACTIONS (2)
  - Heparin-induced thrombocytopenia [None]
  - Thrombosis in device [None]
